FAERS Safety Report 17667473 (Version 8)
Quarter: 2020Q2

REPORT INFORMATION
  Report Type: Report from Study
  Country: MX (occurrence: MX)
  Receive Date: 20200414
  Receipt Date: 20200604
  Transmission Date: 20200713
  Serious: Yes (Hospitalization)
  Sender: FDA-Public Use
  Company Number: MX-PFIZER INC-2020151254

PATIENT
  Age: 59 Year
  Sex: Female
  Weight: 81 kg

DRUGS (24)
  1. METRONIDAZOLE. [Concomitant]
     Active Substance: METRONIDAZOLE
     Dosage: 500 MG, 2X/DAY
     Route: 042
     Dates: start: 20150809, end: 20150812
  2. ONDASETRON [ONDANSETRON HYDROCHLORIDE] [Concomitant]
     Dosage: 8 MG, 2X/DAY
     Route: 042
     Dates: start: 20150809, end: 20150812
  3. BOSUTINIB [Suspect]
     Active Substance: BOSUTINIB
     Indication: CHRONIC MYELOID LEUKAEMIA
     Dosage: 400 MG, UNK
     Dates: start: 20150728, end: 20150810
  4. PANTOPRAZOLE [Concomitant]
     Active Substance: PANTOPRAZOLE
     Dosage: 40 MG, 2X/DAY
     Route: 042
     Dates: start: 20150809, end: 20150815
  5. PANTOPRAZOLE [Concomitant]
     Active Substance: PANTOPRAZOLE
     Dosage: 40 MG, DAILY
     Route: 048
     Dates: start: 20150817
  6. SUPRA [Concomitant]
     Active Substance: LIDAMIDINE HYDROCHLORIDE
     Dosage: 4 MG, DAILY
     Route: 048
     Dates: start: 20150817, end: 20150831
  7. MAGNESIUM SULPHATE [MAGNESIUM SULFATE] [Concomitant]
     Active Substance: MAGNESIUM SULFATE
     Dosage: 1 G, DAILY
     Route: 042
     Dates: start: 20150809, end: 20150812
  8. VITAMIN B12 [VITAMIN B12 NOS] [Concomitant]
     Active Substance: CYANOCOBALAMIN
     Dosage: 1 DF, DAILY
     Route: 042
     Dates: start: 20150809, end: 20150812
  9. BOSUTINIB [Suspect]
     Active Substance: BOSUTINIB
     Dosage: 500 MG, UNK
     Dates: start: 20160920, end: 20170822
  10. CALCIUM GLUCONATE. [Concomitant]
     Active Substance: CALCIUM GLUCONATE
     Dosage: 10 %, 2X/DAY
     Route: 042
     Dates: start: 20150809, end: 20150812
  11. TEMPRA [Concomitant]
     Active Substance: ACETAMINOPHEN
     Dosage: 250 MG, 4X/DAY
     Route: 048
     Dates: start: 20150806, end: 20150807
  12. BOSUTINIB [Suspect]
     Active Substance: BOSUTINIB
     Dosage: 400 MG, UNK
     Dates: start: 20170829, end: 20200310
  13. HIDRASEC [Concomitant]
     Active Substance: RACECADOTRIL
     Dosage: 100 MG, DAILY
     Route: 048
     Dates: start: 20150809, end: 20150812
  14. BOSUTINIB [Suspect]
     Active Substance: BOSUTINIB
     Dosage: 300 MG, UNK
     Dates: start: 20150922, end: 20160114
  15. BOSUTINIB [Suspect]
     Active Substance: BOSUTINIB
     Dosage: 400 MG, UNK
     Dates: start: 20160114, end: 20160920
  16. BOSUTINIB [Suspect]
     Active Substance: BOSUTINIB
     Dosage: 400 MG
     Dates: start: 20150814, end: 20150815
  17. CEFTRIAXONE. [Concomitant]
     Active Substance: CEFTRIAXONE
     Dosage: 1 G, 2X/DAY
     Route: 042
     Dates: start: 20150809, end: 20150812
  18. KELEFUSIN [Concomitant]
     Dosage: 1.49 G, 3X/DAY
     Route: 042
     Dates: start: 20150809, end: 20150812
  19. BOSUTINIB [Suspect]
     Active Substance: BOSUTINIB
     Dosage: 300 MG
     Dates: start: 20150818, end: 20150825
  20. AMIKACIN. [Concomitant]
     Active Substance: AMIKACIN
     Dosage: 500 MG, 2X/DAY
     Route: 042
     Dates: start: 20150810, end: 20150812
  21. TRIMEBUTINE [Concomitant]
     Active Substance: TRIMEBUTINE
     Dosage: 50 MG, 2X/DAY
     Route: 042
     Dates: start: 20150809, end: 20150812
  22. TEMPRA [Concomitant]
     Active Substance: ACETAMINOPHEN
     Dosage: 1 G, 2X/DAY
     Route: 042
     Dates: start: 20150809, end: 20150810
  23. METICORTEN [Concomitant]
     Active Substance: PREDNISONE
     Dosage: 15 MG, DAILY
     Route: 048
     Dates: start: 20151006, end: 20151015
  24. HUMAN ALBUMIN 20% BEHRING [Concomitant]
     Dosage: 50 ML, DAILY
     Route: 042
     Dates: start: 20150809, end: 20150812

REACTIONS (2)
  - Hypovolaemic shock [Recovered/Resolved]
  - Diarrhoea [Recovered/Resolved]

NARRATIVE: CASE EVENT DATE: 20150809
